FAERS Safety Report 21853534 (Version 1)
Quarter: 2023Q1

REPORT INFORMATION
  Report Type: Spontaneous
  Country: RS (occurrence: RS)
  Receive Date: 20230112
  Receipt Date: 20230112
  Transmission Date: 20230417
  Serious: Yes (Death, Life-Threatening, Hospitalization, Other)
  Sender: FDA-Public Use
  Company Number: RS-MLMSERVICE-20221229-4003897-1

PATIENT
  Age: 23 Year
  Sex: Female

DRUGS (3)
  1. CISPLATIN [Suspect]
     Active Substance: CISPLATIN
     Indication: Medulloblastoma
     Dosage: CUMULATIVE DOSE: 06 (CYCLICAL)
  2. LOMUSTINE [Suspect]
     Active Substance: LOMUSTINE
     Indication: Medulloblastoma
     Dosage: CUMULATIVE DOSE: 06 (CYCLICAL)
  3. VINCRISTINE [Suspect]
     Active Substance: VINCRISTINE
     Indication: Medulloblastoma
     Dosage: CUMULATIVE DOSE: 06 (CYCLICAL)

REACTIONS (5)
  - Ewing^s sarcoma metastatic [Fatal]
  - Metastases to bone [Fatal]
  - Second primary malignancy [Fatal]
  - Metastases to lung [Fatal]
  - Off label use [Unknown]
